FAERS Safety Report 6060239-9 (Version None)
Quarter: 2009Q1

REPORT INFORMATION
  Report Type: 
  Country: None (occurrence: None)
  Receive Date: 20090129
  Receipt Date: 20090112
  Transmission Date: 20090719
  Serious: Yes (Congenital Anomaly)
  Sender: FDA-Public Use
  Company Number: 8041484

PATIENT
  Sex: Male

DRUGS (3)
  1. KEPPRA [Suspect]
     Indication: EPILEPSY
     Dosage: 2250 MG /D TRP
     Route: 064
  2. LAMOTRIGINE [Concomitant]
  3. FOLIC ACID [Concomitant]

REACTIONS (14)
  - AGITATION NEONATAL [None]
  - CALCIUM METABOLISM DISORDER [None]
  - COAGULATION DISORDER NEONATAL [None]
  - DERMAL SINUS [None]
  - DRUG WITHDRAWAL SYNDROME NEONATAL [None]
  - INFANTILE APNOEIC ATTACK [None]
  - LEFT VENTRICULAR FAILURE [None]
  - MATERNAL DRUGS AFFECTING FOETUS [None]
  - NEONATAL DISORDER [None]
  - NEONATAL PNEUMONIA [None]
  - NEONATAL RESPIRATORY DISTRESS SYNDROME [None]
  - NEONATAL RESPIRATORY FAILURE [None]
  - PORTAL VEIN THROMBOSIS [None]
  - RIGHT VENTRICULAR FAILURE [None]
